FAERS Safety Report 10170060 (Version 3)
Quarter: 2014Q2

REPORT INFORMATION
  Report Type: Spontaneous
  Country: AU (occurrence: AU)
  Receive Date: 20140513
  Receipt Date: 20140603
  Transmission Date: 20141212
  Serious: Yes (Death, Other)
  Sender: FDA-Public Use
  Company Number: AU-PFIZER INC-2014126779

PATIENT
  Age: 90 Year
  Sex: Female

DRUGS (12)
  1. LYRICA [Suspect]
     Indication: SPINAL COLUMN STENOSIS
     Dosage: 50 MG, ONCE AT NIGHT
     Route: 048
  2. LYRICA [Suspect]
     Indication: NEURALGIA
  3. ZOLEDRONIC [Concomitant]
  4. ALDACTONE [Concomitant]
  5. GLYADE [Concomitant]
  6. KARVEA [Concomitant]
  7. PARIET [Concomitant]
  8. PANADEINE [Concomitant]
  9. PANADEINE FORTE [Concomitant]
  10. SERETIDE [Concomitant]
  11. VITAMIN D [Concomitant]
  12. CARTIA [Concomitant]

REACTIONS (5)
  - Death [Fatal]
  - Cervical vertebral fracture [Unknown]
  - Dizziness [Unknown]
  - Fall [Unknown]
  - Urinary tract infection [Unknown]
